FAERS Safety Report 6113657-4 (Version None)
Quarter: 2009Q1

REPORT INFORMATION
  Report Type: 
  Country: None (occurrence: None)
  Receive Date: 20090312
  Receipt Date: 20090302
  Transmission Date: 20090719
  Serious: Yes (Other)
  Sender: FDA-Public Use
  Company Number: PHHY2009JP07266

PATIENT
  Age: 60 Year
  Sex: Female

DRUGS (11)
  1. DIOVAN [Suspect]
     Indication: HYPERTENSION
     Dosage: 40 MG, QD
     Route: 048
     Dates: start: 20040501, end: 20041201
  2. DIOVAN [Suspect]
     Dosage: 20 MG, QD
     Route: 048
     Dates: start: 20041201, end: 20050401
  3. DIOVAN [Suspect]
     Dosage: 20 MG, QD
     Route: 048
     Dates: start: 20050601, end: 20070101
  4. DIOVAN [Suspect]
     Dosage: 40 MG, QD
     Route: 048
     Dates: start: 20070101, end: 20080101
  5. DIOVAN [Suspect]
     Dosage: 20 MG, BID
     Route: 048
     Dates: start: 20080101, end: 20080801
  6. DIOVAN [Suspect]
     Dosage: 20 MG, QD
     Route: 048
     Dates: start: 20080801, end: 20090101
  7. DIOVAN [Suspect]
     Dosage: 20 MG, BID
     Route: 048
     Dates: start: 20090101
  8. CONIEL [Concomitant]
     Indication: NAUSEA
     Dosage: 5 MG, UNK
     Route: 048
     Dates: start: 20050401, end: 20050501
  9. HERBESSER ^DELTA^ [Concomitant]
     Indication: HEADACHE
     Dosage: 10 MG, UNK
     Route: 048
     Dates: start: 20050401, end: 20050501
  10. LOCHOL [Concomitant]
     Dosage: 30 MG, UNK
     Route: 048
     Dates: start: 20040701, end: 20050401
  11. BLOPRESS [Concomitant]

REACTIONS (1)
  - RAYNAUD'S PHENOMENON [None]
